FAERS Safety Report 7909471-7 (Version None)
Quarter: 2011Q4

REPORT INFORMATION
  Report Type: 
  Country: None (occurrence: None)
  Receive Date: 20111111
  Receipt Date: 20111107
  Transmission Date: 20120403
  Serious: Yes (Hospitalization)
  Sender: FDA-Public Use
  Company Number: DE-AMGEN-UK338675

PATIENT
  Age: 74 Year
  Sex: Female

DRUGS (28)
  1. MOTILIUM [Concomitant]
     Dosage: UNK UNK, UNK
     Route: 048
  2. NOCTAMID [Concomitant]
     Dosage: 1 MG, UNK
     Route: 048
     Dates: start: 20081201, end: 20090114
  3. FORTECORTIN [Concomitant]
     Dosage: 8 MG, UNK
     Route: 048
     Dates: start: 20081204, end: 20081204
  4. MORPHINE [Concomitant]
     Dosage: UNK UNK, UNK
     Route: 065
     Dates: start: 20081201
  5. LASIX [Concomitant]
     Dosage: 40 MG, UNK
     Route: 048
     Dates: start: 20090109, end: 20090315
  6. CISPLATIN [Concomitant]
     Dosage: 75 MG/M2, QCYCLE
     Route: 042
     Dates: start: 20081204, end: 20090118
  7. DURAGESIC-100 [Concomitant]
     Dosage: 12.5 MUG, QH
     Route: 062
     Dates: start: 20081229, end: 20090114
  8. BIFITERAL [Concomitant]
     Dosage: 10 ML, UNK
     Route: 048
     Dates: start: 20090102, end: 20090105
  9. ACTIQ [Concomitant]
     Dosage: 600 MG, UNK
     Route: 048
     Dates: start: 20090116, end: 20090214
  10. PROMETHAZINE HCL [Concomitant]
     Dosage: UNK UNK, UNK
     Route: 048
     Dates: end: 20090214
  11. PANITUMUMAB [Suspect]
     Indication: SQUAMOUS CELL CARCINOMA
     Dosage: 405 MG, QCYCLE
     Route: 042
     Dates: start: 20081204, end: 20090119
  12. EMEND [Concomitant]
     Dosage: 80 MG, UNK
     Route: 048
     Dates: start: 20081204, end: 20081208
  13. CLEMASTINE FUMARATE [Concomitant]
     Dosage: UNK UNK, UNK
     Route: 048
     Dates: start: 20081223, end: 20081223
  14. TPN [Concomitant]
     Dosage: UNK UNK, UNK
     Route: 042
     Dates: start: 20090101, end: 20090315
  15. OLICLINOMEL [Concomitant]
     Dosage: UNK UNK, UNK
     Route: 042
     Dates: start: 20090108, end: 20090109
  16. CIPROFLOXACIN [Concomitant]
     Dosage: 5 ML, UNK
     Route: 048
     Dates: start: 20090112, end: 20090119
  17. NOVALGIN [Concomitant]
     Dosage: UNK UNK, UNK
     Dates: start: 20090106
  18. PANTOPRAZOLE SODIUM [Concomitant]
     Dosage: 40 MG, UNK
     Route: 048
     Dates: start: 20081201
  19. ZOFRAN [Concomitant]
     Dosage: 8 MG, UNK
     Route: 048
     Dates: start: 20081204, end: 20081208
  20. DICLOFENAC SODIUM [Concomitant]
     Dosage: UNK UNK, UNK
     Route: 048
     Dates: start: 20090114, end: 20090214
  21. ACETYLCYSTEINE [Concomitant]
     Dosage: 600 MG, UNK
     Route: 048
     Dates: start: 20090101, end: 20090315
  22. LAXOBERAL [Concomitant]
     Dosage: UNK UNK, UNK
     Route: 048
     Dates: start: 20081202
  23. KALIUM [Concomitant]
     Dosage: UNK UNK, UNK
     Route: 042
     Dates: start: 20090101, end: 20090214
  24. VOMEX A [Concomitant]
     Dosage: UNK UNK, UNK
     Route: 054
     Dates: start: 20090115, end: 20090115
  25. CERNEVIT-12 [Concomitant]
     Dosage: UNK UNK, UNK
     Route: 042
     Dates: end: 20090315
  26. ADDEL N [Concomitant]
  27. ALDACTONE [Concomitant]
     Dosage: 100 MG, UNK
     Route: 048
  28. DICLOFENAC SODIUM [Concomitant]
     Dosage: 50 MG, UNK
     Route: 054
     Dates: start: 20090115, end: 20090214

REACTIONS (3)
  - DIVERTICULITIS [None]
  - COLITIS [None]
  - DYSPHAGIA [None]
